FAERS Safety Report 17291457 (Version 1)
Quarter: 2020Q1

REPORT INFORMATION
  Report Type: Spontaneous
  Country: PT (occurrence: PT)
  Receive Date: 20200121
  Receipt Date: 20200121
  Transmission Date: 20200409
  Serious: Yes (Hospitalization, Other)
  Sender: FDA-Public Use
  Company Number: PT-ACCORD-170178

PATIENT
  Age: 56 Year
  Sex: Female

DRUGS (3)
  1. FLUOROURACIL. [Suspect]
     Active Substance: FLUOROURACIL
     Indication: GASTROINTESTINAL CANCER METASTATIC
     Dosage: 1819 MG 5-DAY PUMP - 1ST CYCLE
     Route: 042
     Dates: start: 20191212, end: 20191217
  2. OXALIPLATIN. [Suspect]
     Active Substance: OXALIPLATIN
     Indication: GASTROINTESTINAL CANCER METASTATIC
     Dosage: 154 MG PER CYCLE - 1ST CYCLE
     Route: 042
     Dates: start: 20191113, end: 20191113
  3. CISPLATIN. [Suspect]
     Active Substance: CISPLATIN
     Indication: GASTROINTESTINAL CANCER METASTATIC
     Dosage: 182 MG CYCLE - 1ST CYCLE
     Route: 042
     Dates: start: 20191212, end: 20191212

REACTIONS (10)
  - Mucosal inflammation [Unknown]
  - Dyspnoea [Recovered/Resolved]
  - Feeling cold [Recovered/Resolved]
  - Febrile neutropenia [Unknown]
  - Off label use [Unknown]
  - Tongue oedema [Recovered/Resolved]
  - Abdominal pain [Recovered/Resolved]
  - Hyperhidrosis [Recovered/Resolved]
  - Pallor [Recovered/Resolved]
  - Oxygen saturation decreased [Recovered/Resolved]

NARRATIVE: CASE EVENT DATE: 20191113
